FAERS Safety Report 7595646-6 (Version None)
Quarter: 2011Q3

REPORT INFORMATION
  Report Type: 
  Country: None (occurrence: None)
  Receive Date: 20110707
  Receipt Date: 20110627
  Transmission Date: 20111222
  Serious: Yes (Death, Hospitalization)
  Sender: FDA-Public Use
  Company Number: GXBR2011US02263

PATIENT
  Sex: Male
  Weight: 63.492 kg

DRUGS (27)
  1. OMEPRAZOLE [Concomitant]
     Dosage: 40 MG, UNK
  2. CARBIDOPA + LEVODOPA [Concomitant]
     Dosage: 25MG CARBIDOPA, 100MG LEVODOPA
  3. CEFUROXIME [Concomitant]
     Dosage: 500 MG, UNK
     Dates: start: 20081220
  4. LYRICA [Concomitant]
     Dosage: UNK MG, UNK
  5. DEPAKOTE [Concomitant]
     Dosage: 125 MG, UNK
  6. LEVAQUIN [Concomitant]
     Dosage: 500 MG, UNK
     Dates: start: 20081006
  7. ALUMINIUM W/MAGNESIUM [Concomitant]
     Dosage: UNK DF, UNK
  8. WARFARIN SODIUM [Suspect]
     Dosage: UNK MG, QD
  9. POTASSIUM CHLORIDE [Concomitant]
     Dosage: UNK MEQ, UNK
  10. METOPROLOL TARTRATE [Suspect]
     Indication: HYPERTENSION
     Dosage: 50 MG, BID
     Route: 048
     Dates: start: 20080915
  11. ZYPREXA [Concomitant]
     Dosage: UNK MG, UNK
  12. ACETAMINOPHEN [Concomitant]
     Dosage: 325 MG, UNK
  13. DIPHENHYDRAMINE HCL [Concomitant]
     Dosage: 50 MG/ML, UNK
  14. LOVENOX [Concomitant]
     Dosage: 80 MG, UNK
  15. VALPROIC ACID [Concomitant]
     Dosage: UNK MG, UNK
  16. ZOLPIDEM [Concomitant]
     Dosage: 5 MG, UNK
  17. MILK OF MAGNESIA TAB [Concomitant]
     Dosage: UNK DF, UNK
  18. POLYETHYLENE GLYCOL-3350 [Concomitant]
     Dosage: UNK DF, UNK
  19. HYDROCODONE BITARTRATE AND ACETAMINOPHEN [Concomitant]
     Dosage: HYDROCODONE 5 MG AND ACETAMINOPHEN 500 MG
  20. NAMENDA [Concomitant]
     Dosage: 10 MG, UNK
  21. EXELON [Concomitant]
     Dosage: UNK DF, UNK
     Route: 062
  22. LEVAQUIN [Concomitant]
     Dosage: UNK MG, UNK
     Dates: start: 20081106
  23. DOCUSATE [Concomitant]
     Dosage: UNK MG, QD
  24. ARICEPT [Concomitant]
     Dosage: 10 MG, UNK
  25. BISACODYL [Concomitant]
     Dosage: 10 MG, UNK
     Route: 054
  26. TRAZODONE HCL [Concomitant]
     Dosage: 50 MG, UNK
  27. HYDROXYZINE HYDROCHLORIDE [Concomitant]
     Dosage: 25 MG, UNK

REACTIONS (13)
  - CONFUSIONAL STATE [None]
  - PULMONARY EMBOLISM [None]
  - DEEP VEIN THROMBOSIS [None]
  - DEMENTIA [None]
  - HAEMATOCHEZIA [None]
  - HAEMATEMESIS [None]
  - DEPRESSION [None]
  - COLONIC POLYP [None]
  - DEHYDRATION [None]
  - AGITATION [None]
  - GASTROINTESTINAL HAEMORRHAGE [None]
  - HYPERTENSION [None]
  - ASTHENIA [None]
